FAERS Safety Report 10206595 (Version 2)
Quarter: 2015Q1

REPORT INFORMATION
  Report Type: Spontaneous
  Country: US (occurrence: US)
  Receive Date: 20140530
  Receipt Date: 20150220
  Transmission Date: 20150720
  Serious: No
  Sender: FDA-Public Use
  Company Number: US-GLAXOSMITHKLINE-A1051501A

PATIENT
  Age: 49 Year
  Sex: Female

DRUGS (2)
  1. FLOLAN [Suspect]
     Active Substance: EPOPROSTENOL SODIUM
     Indication: PULMONARY ARTERIAL HYPERTENSION
     Dosage: CONCENTRATION: 45,000 NG/MLPUMP RATE: 72 ML/DAY
     Route: 065
     Dates: start: 19990304
  2. FLOLAN [Suspect]
     Active Substance: EPOPROSTENOL SODIUM
     Dosage: 33 NG/KG/MIN, CO

REACTIONS (2)
  - Nasopharyngitis [Unknown]
  - Medical device complication [Unknown]

NARRATIVE: CASE EVENT DATE: 20150129
